FAERS Safety Report 7580184-7 (Version None)
Quarter: 2011Q2

REPORT INFORMATION
  Report Type: 
  Country: None (occurrence: None)
  Receive Date: 20110629
  Receipt Date: 20110610
  Transmission Date: 20111010
  Serious: Yes (Hospitalization)
  Sender: FDA-Public Use
  Company Number: US-BAYER-201041484NA

PATIENT
  Age: 32 Year
  Sex: Female
  Weight: 74.8 kg

DRUGS (5)
  1. DARVON [Concomitant]
     Dosage: 65 MG, PRN
  2. TOPAMAX [Concomitant]
     Dosage: UNK
     Dates: start: 20051201
  3. DROSPIRENONE AND ETHINYL ESTRADIOL [Suspect]
     Indication: ACNE
  4. YAZ [Suspect]
     Indication: ACNE
     Dosage: UNK
     Dates: start: 20070701
  5. YASMIN [Suspect]
     Indication: ACNE
     Dosage: UNK
     Dates: start: 20050601

REACTIONS (4)
  - CHOLECYSTITIS CHRONIC [None]
  - INJURY [None]
  - GALLBLADDER DISORDER [None]
  - PAIN [None]
